FAERS Safety Report 24766841 (Version 4)
Quarter: 2025Q1

REPORT INFORMATION
  Report Type: Report from Study
  Country: FR (occurrence: FR)
  Receive Date: 20241223
  Receipt Date: 20250325
  Transmission Date: 20250409
  Serious: Yes (Hospitalization)
  Sender: MYLAN
  Company Number: FR-002147023-NVSC2024FR224751

PATIENT
  Age: 44 Year
  Sex: Female
  Weight: 80 kg

DRUGS (3)
  1. VENLAFAXINE [Suspect]
     Active Substance: VENLAFAXINE HYDROCHLORIDE
     Indication: Depression
     Dosage: 75 MILLIGRAM, TID, (75 MG X3) QD (DAILY)
     Dates: start: 20240929
  2. PAROXETINE [Suspect]
     Active Substance: PAROXETINE
     Indication: Depression
  3. COSENTYX [Suspect]
     Active Substance: SECUKINUMAB
     Indication: Hidradenitis
     Dosage: 300 MILLIGRAM, Q28D
     Dates: start: 20240821

REACTIONS (6)
  - Depression [Recovering/Resolving]
  - Anxiety [Recovering/Resolving]
  - Mania [Recovering/Resolving]
  - Urticaria [Recovered/Resolved]
  - Fatigue [Recovering/Resolving]
  - Myalgia [Recovered/Resolved]

NARRATIVE: CASE EVENT DATE: 20241001
